FAERS Safety Report 4898383-1 (Version None)
Quarter: 2006Q1

REPORT INFORMATION
  Report Type: 
  Country: None (occurrence: None)
  Receive Date: 20060131
  Receipt Date: 20060131
  Transmission Date: 20060701
  Serious: Yes (Life-Threatening, Hospitalization)
  Sender: FDA-Public Use
  Company Number: None

PATIENT
  Sex: Female
  Weight: 72.5755 kg

DRUGS (7)
  1. FOSINOPRIL SODIUM [Suspect]
     Indication: HYPERTENSION
     Dosage: PO
     Route: 048
     Dates: start: 20050101, end: 20060122
  2. RENAGEL [Concomitant]
  3. PREMARIN [Concomitant]
  4. PREVACID [Concomitant]
  5. ZOLOFT [Concomitant]
  6. NEPHROCAPS [Concomitant]
  7. ASPIRIN [Concomitant]

REACTIONS (2)
  - ANGIONEUROTIC OEDEMA [None]
  - GLOSSITIS [None]
